FAERS Safety Report 7110044-7 (Version None)
Quarter: 2010Q4

REPORT INFORMATION
  Report Type: 
  Country: None (occurrence: None)
  Receive Date: 20101118
  Receipt Date: 20101109
  Transmission Date: 20110411
  Serious: Yes (Death, Other)
  Sender: FDA-Public Use
  Company Number: US-TEVA-255239USA

PATIENT
  Age: 19 Year
  Sex: Female

DRUGS (2)
  1. AVIANE-21 [Suspect]
  2. CONTRACEPTIVES NOS [Concomitant]

REACTIONS (2)
  - COMPLETED SUICIDE [None]
  - DEPRESSION [None]
